FAERS Safety Report 19577340 (Version 7)
Quarter: 2021Q4

REPORT INFORMATION
  Report Type: Spontaneous
  Country: US (occurrence: US)
  Receive Date: 20210719
  Receipt Date: 20211102
  Transmission Date: 20220303
  Serious: Yes (Other)
  Sender: FDA-Public Use
  Company Number: US-GLAXOSMITHKLINE-US2021AMR152008

PATIENT
  Sex: Female

DRUGS (2)
  1. ZEJULA [Suspect]
     Active Substance: NIRAPARIB
     Indication: Product used for unknown indication
     Dosage: 200 MG, QD
  2. MODERNA COVID-19 VACCINE [Suspect]
     Active Substance: CX-024414
     Indication: COVID-19 prophylaxis
     Dosage: UNK
     Dates: start: 20210821

REACTIONS (9)
  - Neuropathy peripheral [Recovering/Resolving]
  - Fatigue [Not Recovered/Not Resolved]
  - Myalgia [Unknown]
  - Arthralgia [Unknown]
  - Muscular weakness [Unknown]
  - Dry mouth [Unknown]
  - Hyperhidrosis [Unknown]
  - Condition aggravated [Unknown]
  - Abdominal pain [Unknown]
